FAERS Safety Report 24273527 (Version 2)
Quarter: 2024Q3

REPORT INFORMATION
  Report Type: Spontaneous
  Country: BE (occurrence: BE)
  Receive Date: 20240902
  Receipt Date: 20240920
  Transmission Date: 20241017
  Serious: Yes (Hospitalization, Other)
  Sender: PFIZER
  Company Number: BE-ROCHE-10000059968

PATIENT
  Age: 69 Year
  Sex: Male
  Weight: 58.9 kg

DRUGS (19)
  1. DOXORUBICIN HYDROCHLORIDE [Suspect]
     Active Substance: DOXORUBICIN HYDROCHLORIDE
     Indication: Diffuse large B-cell lymphoma
     Dosage: 84 MG, EVERY 3 WEEKS (START DATE OF MOST RECENT DOSE OF STUDY DRUG PRIOR TO AE: 14AUG2024)
     Route: 042
     Dates: start: 20240605
  2. RITUXIMAB [Suspect]
     Active Substance: RITUXIMAB
     Indication: Diffuse large B-cell lymphoma
     Dosage: 630 MG, EVERY 3 WEEKS (START DATE OF MOST RECENT DOSE OF STUDY DRUG PRIOR TO AE: 14AUG2024)
     Route: 042
     Dates: start: 20240605
  3. CYCLOPHOSPHAMIDE [Suspect]
     Active Substance: CYCLOPHOSPHAMIDE
     Indication: Diffuse large B-cell lymphoma
     Dosage: 1260 MG, EVERY 3 WEEKS (START DATE OF MOST RECENT DOSE OF STUDY DRUG PRIOR TO AE: 14AUG2024)
     Route: 042
     Dates: start: 20240605
  4. POLATUZUMAB VEDOTIN [Suspect]
     Active Substance: POLATUZUMAB VEDOTIN
     Indication: Diffuse large B-cell lymphoma
     Dosage: 104.4 MG, EVERY 3 WEEKS (START DATE OF MOST RECENT DOSE OF STUDY DRUG PRIOR TO AE: 14AUG2024)
     Route: 042
     Dates: start: 20240606
  5. NEBIVOLOL [Concomitant]
     Active Substance: NEBIVOLOL
     Indication: Myocardial ischaemia
     Dosage: 5 MG, 1X/DAY
     Route: 048
     Dates: start: 2019
  6. CHOLESFYTOL [Concomitant]
     Indication: Nutritional supplementation
     Dosage: UNK UNK, 2X/DAY (GIVEN FOR PROPHYLAXIS IS YES)
     Route: 048
  7. METFORMIN [Concomitant]
     Active Substance: METFORMIN HYDROCHLORIDE
     Indication: Diabetes mellitus
     Dosage: 500 MG, 1X/DAY
     Route: 048
     Dates: start: 2002
  8. FOLIC ACID [Concomitant]
     Active Substance: FOLIC ACID
     Indication: Folate deficiency
     Dosage: 4 MG, EVERY 3 DAYS (GIVEN FOR PROPHYLAXIS IS YES)
     Route: 048
     Dates: start: 2024
  9. LAMIVUDINE [Concomitant]
     Active Substance: LAMIVUDINE
     Indication: Prophylaxis
     Dosage: 100 MG, 1X/DAY (GIVEN FOR PROPHYLAXIS IS YES)
     Route: 058
     Dates: start: 20240625
  10. ACYCLOVIR [Concomitant]
     Active Substance: ACYCLOVIR
     Indication: Infection prophylaxis
     Dosage: 400 MG, 2X/DAY (GIVEN FOR PROPHYLAXIS IS YES)
     Route: 048
     Dates: start: 2024
  11. LEVOCETIRIZINE DIHYDROCHLORIDE [Concomitant]
     Active Substance: LEVOCETIRIZINE DIHYDROCHLORIDE
     Indication: Premedication
     Dosage: 5 MG, EVERY 3 WEEKS
     Route: 048
     Dates: start: 20240625
  12. SYMBICORT [Concomitant]
     Active Substance: BUDESONIDE\FORMOTEROL FUMARATE DIHYDRATE
     Indication: Asthma
     Dosage: UNK UNK, 1X/DAY (DRUG DOSE FIRST ADMINISTERED IS 1 PUFF)
     Route: 045
     Dates: start: 2024
  13. BACTRIM [Concomitant]
     Active Substance: SULFAMETHOXAZOLE\TRIMETHOPRIM
     Indication: Infection prophylaxis
     Dosage: 960 MG, EVERY 3 DAYS(GIVEN FOR PROPHYLAXIS IS YES)
     Route: 048
     Dates: start: 2024
  14. PEGFILGRASTIM [Concomitant]
     Active Substance: PEGFILGRASTIM
     Indication: Prophylaxis
     Dosage: 6 MG, EVERY 3 WEEKS (GIVEN FOR PROPHYLAXIS IS YES)
     Route: 058
     Dates: start: 20240608
  15. DAFALGAN [Concomitant]
     Active Substance: ACETAMINOPHEN
     Indication: Premedication
     Dosage: 1000 MG, EVERY 3 WEEKS
     Route: 048
     Dates: start: 20240625
  16. CHOLECALCIFEROL [Concomitant]
     Active Substance: CHOLECALCIFEROL
     Indication: Prophylaxis
     Dosage: 25000 IU, WEEKLY (GIVEN FOR PROPHYLAXIS IS YES)
     Route: 048
     Dates: start: 2024
  17. FENOFIBRATE [Concomitant]
     Active Substance: FENOFIBRATE
     Indication: Myocardial ischaemia
     Dosage: 267 MG, 1X/DAY
     Route: 048
     Dates: start: 2019
  18. ASPIRIN [Concomitant]
     Active Substance: ASPIRIN
     Indication: Myocardial ischaemia
     Dosage: 80 MG, 1X/DAY
     Route: 048
     Dates: start: 2019
  19. METHYLPREDNISOLONE [Concomitant]
     Active Substance: METHYLPREDNISOLONE
     Indication: Diffuse large B-cell lymphoma
     Dosage: 80 MG, EVERY 3 WEEKS (START DATE OF MOST RECENT DOSE OF STUDY DRUG PRIOR TO AE: 14-AUG-2024)
     Route: 042
     Dates: start: 20240605

REACTIONS (3)
  - Febrile neutropenia [Recovered/Resolved]
  - White blood cell count decreased [Unknown]
  - Platelet count decreased [Unknown]

NARRATIVE: CASE EVENT DATE: 20240816
